FAERS Safety Report 9716047 (Version 1)
Quarter: 2013Q4

REPORT INFORMATION
  Report Type: Spontaneous
  Country: US (occurrence: None)
  Receive Date: 20131126
  Receipt Date: 20131126
  Transmission Date: 20140711
  Serious: No
  Sender: FDA-Public Use
  Company Number: None

PATIENT
  Age: 46 Year
  Sex: Female

DRUGS (1)
  1. ENBREL 20MG AMGEN [Suspect]
     Indication: RHEUMATOID ARTHRITIS
     Dates: start: 20130514

REACTIONS (4)
  - Blister [None]
  - Pruritus [None]
  - Scratch [None]
  - Pain [None]
